FAERS Safety Report 16961811 (Version 1)
Quarter: 2019Q4

REPORT INFORMATION
  Report Type: Spontaneous
  Country: US (occurrence: US)
  Receive Date: 20190905
  Receipt Date: 20190905
  Transmission Date: 20200122
  Serious: Yes (Death)
  Sender: FDA-Public Use
  Company Number: None

PATIENT
  Age: 72 Year
  Sex: Male

DRUGS (4)
  1. DECADRON [Suspect]
     Active Substance: DEXAMETHASONE
     Dates: start: 20190416
  2. ALOXI [Suspect]
     Active Substance: PALONOSETRON HYDROCHLORIDE
     Indication: PREMEDICATION
     Dosage: ?          OTHER DOSE:0.25MG;?
     Route: 042
     Dates: start: 20190416, end: 20190416
  3. EMEND (FOSAPREPITANT DIMEGLUMINE) [Suspect]
     Active Substance: FOSAPREPITANT DIMEGLUMINE
  4. ALOXI [Suspect]
     Active Substance: PALONOSETRON HYDROCHLORIDE
     Indication: SMALL CELL LUNG CANCER
     Dosage: ?          OTHER DOSE:0.25MG;?
     Route: 042
     Dates: start: 20190416, end: 20190416

REACTIONS (3)
  - Loss of consciousness [None]
  - Unresponsive to stimuli [None]
  - Pulse absent [None]

NARRATIVE: CASE EVENT DATE: 20190416
